FAERS Safety Report 22399469 (Version 2)
Quarter: 2023Q2

REPORT INFORMATION
  Report Type: Spontaneous
  Country: US (occurrence: US)
  Receive Date: 20230602
  Receipt Date: 20230614
  Transmission Date: 20230722
  Serious: Yes (Other)
  Sender: FDA-Public Use
  Company Number: US-ELI_LILLY_AND_COMPANY-US202305015444

PATIENT
  Sex: Male

DRUGS (1)
  1. TALTZ [Suspect]
     Active Substance: IXEKIZUMAB
     Indication: Product used for unknown indication
     Dosage: 80 MG, UNKNOWN
     Route: 058

REACTIONS (6)
  - Mesothelioma [Unknown]
  - Malignant melanoma [Unknown]
  - Alopecia [Unknown]
  - Fungal skin infection [Unknown]
  - Impaired healing [Unknown]
  - COVID-19 [Unknown]
